FAERS Safety Report 13612681 (Version 1)
Quarter: 2017Q2

REPORT INFORMATION
  Report Type: Spontaneous
  Country: IE (occurrence: IE)
  Receive Date: 20170605
  Receipt Date: 20170605
  Transmission Date: 20170830
  Serious: Yes (Death, Other)
  Sender: FDA-Public Use
  Company Number: IE-SA-2017SA099263

PATIENT
  Age: 60 Year
  Sex: Female

DRUGS (2)
  1. HEPARIN [Concomitant]
     Active Substance: HEPARIN SODIUM
     Indication: ANTICOAGULANT THERAPY
     Route: 065
  2. CLEXANE [Suspect]
     Active Substance: ENOXAPARIN SODIUM
     Indication: ANTICOAGULANT THERAPY
     Route: 065
     Dates: start: 20150515

REACTIONS (7)
  - Tracheal obstruction [Fatal]
  - Hypoxic-ischaemic encephalopathy [Fatal]
  - Haematoma [Fatal]
  - Dysphagia [Unknown]
  - Dyspnoea [Unknown]
  - Respiratory arrest [Fatal]
  - Local swelling [Unknown]

NARRATIVE: CASE EVENT DATE: 20150515
